FAERS Safety Report 4833895-8 (Version None)
Quarter: 2005Q4

REPORT INFORMATION
  Report Type: 
  Country: None (occurrence: None)
  Receive Date: 20051122
  Receipt Date: 20050818
  Transmission Date: 20060501
  Serious: Yes (Hospitalization)
  Sender: FDA-Public Use
  Company Number: JP-BOEHRINGER INGELHEIM PHARMACEUTICALS, INC.-2005-BP-14379NB

PATIENT
  Sex: Female

DRUGS (4)
  1. BI-SIFROL TABLETS [Suspect]
     Indication: PARKINSON'S DISEASE
     Route: 048
     Dates: start: 20050412, end: 20050717
  2. PERMAX [Suspect]
     Indication: PARKINSON'S DISEASE
     Route: 048
     Dates: start: 20050412, end: 20050717
  3. CABASER [Suspect]
     Indication: PARKINSON'S DISEASE
     Route: 048
     Dates: start: 20050412, end: 20050717
  4. DOPACOL [Concomitant]
     Indication: PARKINSON'S DISEASE
     Route: 048
     Dates: start: 20050312, end: 20050717

REACTIONS (3)
  - CONFUSIONAL STATE [None]
  - DELIRIUM [None]
  - EXCITABILITY [None]
